FAERS Safety Report 12647841 (Version 1)
Quarter: 2016Q3

REPORT INFORMATION
  Report Type: Report from Study
  Country: AU (occurrence: AU)
  Receive Date: 20160812
  Receipt Date: 20160812
  Transmission Date: 20161109
  Serious: Yes (Other)
  Sender: FDA-Public Use
  Company Number: AU-MYLANLABS-2016M1033336

PATIENT

DRUGS (19)
  1. PAROXETINE. [Concomitant]
     Active Substance: PAROXETINE
     Indication: PRODUCT USED FOR UNKNOWN INDICATION
     Dosage: 20 MG, UNK
     Route: 065
  2. BICOR                              /00188902/ [Concomitant]
     Active Substance: TERODILINE HYDROCHLORIDE
     Indication: PRODUCT USED FOR UNKNOWN INDICATION
     Route: 065
  3. AROPAX [Concomitant]
     Active Substance: PAROXETINE HYDROCHLORIDE
     Indication: PRODUCT USED FOR UNKNOWN INDICATION
     Route: 065
  4. VIGORA [Concomitant]
     Indication: PRODUCT USED FOR UNKNOWN INDICATION
     Dosage: 5 MG, AM
     Route: 065
  5. SEROQUEL [Suspect]
     Active Substance: QUETIAPINE FUMARATE
     Indication: PRODUCT USED FOR UNKNOWN INDICATION
     Dosage: UNK
     Route: 065
  6. COGENTIN [Concomitant]
     Active Substance: BENZTROPINE MESYLATE
     Indication: PRODUCT USED FOR UNKNOWN INDICATION
     Route: 065
  7. AMINOPHYLLINE. [Concomitant]
     Active Substance: AMINOPHYLLINE
     Indication: PRODUCT USED FOR UNKNOWN INDICATION
     Route: 065
  8. OLANZAPINE MYLAN [Suspect]
     Active Substance: OLANZAPINE
     Indication: PRODUCT USED FOR UNKNOWN INDICATION
     Dosage: UNK
     Route: 065
  9. AVAPRO [Concomitant]
     Active Substance: IRBESARTAN
     Indication: PRODUCT USED FOR UNKNOWN INDICATION
     Dosage: 150 MG, AM
     Route: 065
  10. ZYPREXA [Concomitant]
     Active Substance: OLANZAPINE
     Indication: PRODUCT USED FOR UNKNOWN INDICATION
     Route: 065
  11. OLANZAPINE MYLAN [Suspect]
     Active Substance: OLANZAPINE
     Dosage: 30 MG, UNK
     Route: 065
  12. RISPERDAL CONSTA [Suspect]
     Active Substance: RISPERIDONE
     Indication: PRODUCT USED FOR UNKNOWN INDICATION
     Route: 065
  13. NEXIUM [Concomitant]
     Active Substance: ESOMEPRAZOLE MAGNESIUM
     Indication: PRODUCT USED FOR UNKNOWN INDICATION
     Dosage: 100 MG, UNK
     Route: 065
  14. PERSANTIN [Concomitant]
     Active Substance: DIPYRIDAMOLE
     Indication: PRODUCT USED FOR UNKNOWN INDICATION
     Dosage: 56.4 MG, UNK
     Route: 065
  15. SEROQUEL [Suspect]
     Active Substance: QUETIAPINE FUMARATE
     Dosage: 100 MG, UNK
     Route: 065
  16. CRESTOR [Concomitant]
     Active Substance: ROSUVASTATIN CALCIUM
     Indication: PRODUCT USED FOR UNKNOWN INDICATION
     Dosage: 40 MG, HS
     Route: 065
  17. ASPIRIN                            /00002701/ [Concomitant]
     Active Substance: ASPIRIN
     Indication: PRODUCT USED FOR UNKNOWN INDICATION
     Dosage: 100 MG, HS
     Route: 065
  18. INVEGA [Concomitant]
     Active Substance: PALIPERIDONE
     Indication: PRODUCT USED FOR UNKNOWN INDICATION
     Route: 065
  19. CLOZARIL [Suspect]
     Active Substance: CLOZAPINE
     Indication: SCHIZOPHRENIA
     Dosage: 275 MG, UNK
     Route: 048
     Dates: start: 20050523, end: 20090810

REACTIONS (25)
  - Globulins decreased [Unknown]
  - High density lipoprotein decreased [Not Recovered/Not Resolved]
  - Exercise tolerance decreased [Unknown]
  - Alanine aminotransferase increased [Recovered/Resolved]
  - Total cholesterol/HDL ratio increased [Not Recovered/Not Resolved]
  - Blood sodium increased [Unknown]
  - Mitral valve incompetence [Unknown]
  - Bundle branch block left [Unknown]
  - Cardiac septal hypertrophy [Unknown]
  - Supraventricular extrasystoles [Unknown]
  - Diastolic dysfunction [Unknown]
  - Schizophrenia [Unknown]
  - Myocardial infarction [Unknown]
  - Coronary artery disease [Unknown]
  - Congestive cardiomyopathy [Unknown]
  - Blood cholesterol decreased [Recovering/Resolving]
  - Defect conduction intraventricular [Unknown]
  - Blood triglycerides increased [Not Recovered/Not Resolved]
  - Blood urea decreased [Recovered/Resolved]
  - Ischaemic cardiomyopathy [Unknown]
  - Mean cell volume decreased [Recovered/Resolved]
  - Ejection fraction decreased [Unknown]
  - Ventricular hypokinesia [Unknown]
  - Left ventricular dysfunction [Not Recovered/Not Resolved]
  - Electrocardiogram PR prolongation [Unknown]

NARRATIVE: CASE EVENT DATE: 20050817
